FAERS Safety Report 8814133 (Version 1)
Quarter: 2012Q4

REPORT INFORMATION
  Report Type: Spontaneous
  Country: US (occurrence: None)
  Receive Date: 20120926
  Receipt Date: 20120926
  Transmission Date: 20130627
  Serious: Yes (Other)
  Sender: FDA-Public Use
  Company Number: None

PATIENT
  Sex: Female
  Weight: 68.04 kg

DRUGS (2)
  1. OMEPRAZOLE [Suspect]
     Dosage: 20mg 1qd po
     Route: 048
     Dates: start: 20120629, end: 20120922
  2. OMEPRAZOLE [Suspect]
     Dosage: 40mg 1qd po
     Route: 048
     Dates: start: 20120704, end: 20120922

REACTIONS (3)
  - Hypersensitivity [None]
  - Product substitution issue [None]
  - Urticaria [None]
